FAERS Safety Report 18591341 (Version 1)
Quarter: 2020Q4

REPORT INFORMATION
  Report Type: Spontaneous
  Country: GB (occurrence: GB)
  Receive Date: 20201208
  Receipt Date: 20201208
  Transmission Date: 20210114
  Serious: Yes (Other)
  Sender: FDA-Public Use
  Company Number: GB-PFIZER INC-2020478213

PATIENT
  Age: 61 Year
  Sex: Male
  Weight: 75.5 kg

DRUGS (2)
  1. DOXYCYCLINE HYCLATE. [Suspect]
     Active Substance: DOXYCYCLINE HYCLATE
     Indication: SINUSITIS
     Dosage: 200 MG(200MG FIRST DAY 100MG SECOND DAY)
     Route: 048
     Dates: start: 20201112, end: 20201112
  2. DOXYCYCLINE HYCLATE. [Suspect]
     Active Substance: DOXYCYCLINE HYCLATE
     Dosage: 100 MG(200MG FIRST DAY 100MG SECOND DAY)
     Route: 048
     Dates: start: 20201113, end: 20201113

REACTIONS (4)
  - Skin burning sensation [Unknown]
  - Sensitive skin [Recovered/Resolved with Sequelae]
  - Pain of skin [Recovered/Resolved with Sequelae]
  - Blister [Recovered/Resolved with Sequelae]

NARRATIVE: CASE EVENT DATE: 20201112
